FAERS Safety Report 11614843 (Version 1)
Quarter: 2015Q4

REPORT INFORMATION
  Report Type: Spontaneous
  Country: US (occurrence: US)
  Receive Date: 20151009
  Receipt Date: 20151009
  Transmission Date: 20160304
  Serious: No
  Sender: FDA-Public Use
  Company Number: US-TORRENT-00000840

PATIENT
  Age: 39 Year
  Sex: Male
  Weight: 82 kg

DRUGS (4)
  1. ZOLPIDEM TARTRATE. [Suspect]
     Active Substance: ZOLPIDEM TARTRATE
     Indication: INSOMNIA
     Dosage: ONE IN THE EVENING
  2. OXYCODONE [Concomitant]
     Active Substance: OXYCODONE
     Dosage: 1 TABLET UP TO 3 TIMES A DAY
  3. OXYCONTIN [Concomitant]
     Active Substance: OXYCODONE HYDROCHLORIDE
     Route: 048
  4. SOMA [Concomitant]
     Active Substance: CARISOPRODOL
     Dosage: 1 TABLET UP TO 4 TIMES A DAY

REACTIONS (2)
  - Overdose [Unknown]
  - Drug ineffective [Unknown]
